FAERS Safety Report 9301157 (Version 1)
Quarter: 2013Q2

REPORT INFORMATION
  Report Type: Spontaneous
  Country: US (occurrence: US)
  Receive Date: 20130521
  Receipt Date: 20130521
  Transmission Date: 20140414
  Serious: Yes (Hospitalization)
  Sender: FDA-Public Use
  Company Number: US-GLAXOSMITHKLINE-A1023416A

PATIENT
  Sex: Female

DRUGS (16)
  1. LAMICTAL [Suspect]
     Indication: COMPLEX PARTIAL SEIZURES
     Dosage: 100MG PER DAY
     Route: 048
     Dates: start: 201207, end: 201301
  2. SUMATRIPTAN [Concomitant]
  3. SINGULAIR [Concomitant]
  4. PROAIR HFA [Concomitant]
  5. SYMBICORT [Concomitant]
  6. VITAMIN C [Concomitant]
  7. VITAMIN D [Concomitant]
  8. ALLEGRA [Concomitant]
  9. COUMADIN [Concomitant]
  10. TOPAMAX [Concomitant]
  11. TRAZODONE [Concomitant]
  12. METOPROLOL [Concomitant]
  13. VENLAFAXINE [Concomitant]
  14. FOLIC ACID [Concomitant]
  15. CLONAZEPAM [Concomitant]
  16. METHOTREXATE [Concomitant]

REACTIONS (13)
  - Haemorrhage [Recovered/Resolved]
  - Rib fracture [Recovered/Resolved]
  - Ataxia [Recovered/Resolved]
  - Amnesia [Recovered/Resolved]
  - Balance disorder [Recovered/Resolved]
  - Confusional state [Recovered/Resolved]
  - Mood altered [Recovered/Resolved]
  - Dyspnoea [Recovered/Resolved]
  - Fall [Recovered/Resolved]
  - Upper limb fracture [Recovered/Resolved]
  - Disorientation [Recovered/Resolved]
  - Headache [Recovered/Resolved]
  - Anger [Recovered/Resolved]
